FAERS Safety Report 25083129 (Version 1)
Quarter: 2025Q1

REPORT INFORMATION
  Report Type: Spontaneous
  Country: JP (occurrence: JP)
  Receive Date: 20250317
  Receipt Date: 20250317
  Transmission Date: 20250409
  Serious: Yes (Death, Other)
  Sender: Unknown Manufacturer
  Company Number: JP-862174955-ML2025-01251

PATIENT
  Age: 73 Year
  Sex: Female

DRUGS (4)
  1. TOFACITINIB [Suspect]
     Active Substance: TOFACITINIB
     Indication: Dermatomyositis
  2. TOFACITINIB [Suspect]
     Active Substance: TOFACITINIB
     Indication: Interstitial lung disease
  3. TOFACITINIB [Suspect]
     Active Substance: TOFACITINIB
     Indication: Anti-melanoma differentiation-associated protein 5 antibody positive
  4. CYCLOPHOSPHAMIDE [Concomitant]
     Active Substance: CYCLOPHOSPHAMIDE
     Indication: Product used for unknown indication

REACTIONS (7)
  - Condition aggravated [Fatal]
  - Pneumothorax [Unknown]
  - Pneumomediastinum [Unknown]
  - Angina pectoris [Unknown]
  - Cytopenia [Unknown]
  - Cytomegalovirus infection reactivation [Unknown]
  - Therapy non-responder [Unknown]
